FAERS Safety Report 11872121 (Version 4)
Quarter: 2016Q1

REPORT INFORMATION
  Report Type: Spontaneous
  Country: IT (occurrence: IT)
  Receive Date: 20151228
  Receipt Date: 20160129
  Transmission Date: 20160526
  Serious: Yes (Hospitalization)
  Sender: FDA-Public Use
  Company Number: IT-009507513-1512ITA012501

PATIENT
  Age: 43 Year
  Sex: Male
  Weight: 78 kg

DRUGS (9)
  1. REBETOL [Suspect]
     Active Substance: RIBAVIRIN
     Indication: HEPATITIS C
     Dosage: 200 MG, QD
     Route: 048
     Dates: start: 20151207, end: 20151214
  2. OMEPRAZOLE. [Concomitant]
     Active Substance: OMEPRAZOLE
  3. INSULIN [Concomitant]
     Active Substance: INSULIN NOS
  4. HARVONI [Suspect]
     Active Substance: LEDIPASVIR\SOFOSBUVIR
     Indication: HEPATITIS C
     Dosage: 490 MG DAILY
     Route: 048
     Dates: start: 20151207, end: 20151214
  5. EVEROLIMUS [Concomitant]
     Active Substance: EVEROLIMUS
     Indication: PROPHYLAXIS AGAINST TRANSPLANT REJECTION
  6. LISINOPRIL. [Concomitant]
     Active Substance: LISINOPRIL
  7. TACROLIMUS. [Concomitant]
     Active Substance: TACROLIMUS
     Indication: PROPHYLAXIS AGAINST TRANSPLANT REJECTION
  8. LAMIVUDINE. [Concomitant]
     Active Substance: LAMIVUDINE
  9. LEVOXACIN [Suspect]
     Active Substance: LEVOFLOXACIN
     Indication: PYREXIA
     Dosage: 1000MG DAILY
     Route: 048
     Dates: start: 20151211, end: 20151214

REACTIONS (2)
  - Palatal disorder [Recovered/Resolved]
  - Tongue oedema [Recovered/Resolved]

NARRATIVE: CASE EVENT DATE: 20151215
